FAERS Safety Report 14784287 (Version 1)
Quarter: 2018Q2

REPORT INFORMATION
  Report Type: Spontaneous
  Country: US (occurrence: US)
  Receive Date: 20180413
  Receipt Date: 20180413
  Transmission Date: 20180711
  Serious: Yes (Hospitalization)
  Sender: FDA-Public Use
  Company Number: None

PATIENT
  Sex: Male

DRUGS (6)
  1. GLYBURIDE. [Concomitant]
     Active Substance: GLYBURIDE
  2. HUMALOG [Concomitant]
     Active Substance: INSULIN LISPRO
  3. CAPECITABINE. [Suspect]
     Active Substance: CAPECITABINE
     Indication: NEOPLASM MALIGNANT
     Route: 048
     Dates: start: 20180126
  4. LOSARTAN. [Concomitant]
     Active Substance: LOSARTAN
  5. PRAVASTATIN. [Concomitant]
     Active Substance: PRAVASTATIN
  6. METOPROLOL. [Concomitant]
     Active Substance: METOPROLOL

REACTIONS (3)
  - Fatigue [None]
  - Dizziness [None]
  - Dehydration [None]
